FAERS Safety Report 8836441 (Version 1)
Quarter: 2012Q4

REPORT INFORMATION
  Report Type: 
  Country: US (occurrence: US)
  Receive Date: 20121011
  Receipt Date: 20121011
  Transmission Date: 20130627
  Serious: No
  Sender: FDA-Public Use
  Company Number: US-ASTRAZENECA-2012SE76407

PATIENT
  Age: 41 Year
  Sex: Female
  Weight: 72.6 kg

DRUGS (7)
  1. SEROQUEL [Suspect]
     Indication: BIPOLAR DISORDER
     Dosage: DAILY
     Route: 048
     Dates: start: 2004
  2. SEROQUEL [Suspect]
     Indication: BIPOLAR DISORDER
     Route: 048
  3. GEODON [Suspect]
     Route: 065
  4. XANAX [Concomitant]
     Indication: ANXIETY
  5. XANAX [Concomitant]
     Indication: DEPRESSION
  6. LEXAPRO [Concomitant]
     Indication: ANXIETY
  7. LEXAPRO [Concomitant]
     Indication: DEPRESSION

REACTIONS (4)
  - Depression [Unknown]
  - Memory impairment [Unknown]
  - Weight increased [Unknown]
  - Adverse drug reaction [Unknown]
